FAERS Safety Report 4836485-6 (Version None)
Quarter: 2005Q4

REPORT INFORMATION
  Report Type: 
  Country: None (occurrence: None)
  Receive Date: 20051118
  Receipt Date: 20051107
  Transmission Date: 20060501
  Serious: Yes (Other)
  Sender: FDA-Public Use
  Company Number: 2005151172

PATIENT
  Age: 47 Year
  Sex: Male

DRUGS (1)
  1. FELDENE [Suspect]
     Indication: SPINAL OSTEOARTHRITIS
     Dosage: 20 MG
     Dates: end: 20050912

REACTIONS (1)
  - NAIL DISORDER [None]
